FAERS Safety Report 7008911-8 (Version None)
Quarter: 2010Q3

REPORT INFORMATION
  Report Type: 
  Country: None (occurrence: None)
  Receive Date: 20100420
  Receipt Date: 20100318
  Transmission Date: 20110219
  Serious: No
  Sender: FDA-Public Use
  Company Number: LMI-2010-00186

PATIENT
  Age: 59 Year
  Sex: Male
  Weight: 99.7913 kg

DRUGS (1)
  1. ABLAVAR [Suspect]
     Indication: ANGIOGRAM
     Dosage: (10 ML),INTRAVENOUS
     Route: 042
     Dates: start: 20100318, end: 20100318

REACTIONS (1)
  - BURNING SENSATION [None]
